FAERS Safety Report 9434706 (Version 2)
Quarter: 2013Q3

REPORT INFORMATION
  Report Type: Spontaneous
  Country: US (occurrence: US)
  Receive Date: 20130801
  Receipt Date: 20130913
  Transmission Date: 20140515
  Serious: Yes (Hospitalization)
  Sender: FDA-Public Use
  Company Number: US-ASTELLAS-2013US007926

PATIENT
  Age: 31 Year
  Sex: Female

DRUGS (1)
  1. PROGRAF [Suspect]
     Indication: RENAL TRANSPLANT
     Dosage: 5.5 MG, BID
     Route: 048
     Dates: start: 20091127

REACTIONS (2)
  - Drug ineffective [Unknown]
  - Kidney transplant rejection [Not Recovered/Not Resolved]
